FAERS Safety Report 5658134-X (Version None)
Quarter: 2008Q1

REPORT INFORMATION
  Report Type: 
  Country: None (occurrence: None)
  Receive Date: 20080310
  Receipt Date: 20070503
  Transmission Date: 20080703
  Serious: Yes (Other)
  Sender: FDA-Public Use
  Company Number: US-BAYER-200615102BCC

PATIENT
  Age: 68 Year
  Sex: Female
  Weight: 77 kg

DRUGS (9)
  1. ALEVE [Suspect]
     Indication: ARTHRALGIA
     Dosage: TOTAL DAILY DOSE: 220 MG  UNIT DOSE: 220 MG
     Route: 048
     Dates: start: 20061224
  2. ASPIRIN [Suspect]
     Indication: DRUG USE FOR UNKNOWN INDICATION
  3. VITAMIN B-12 [Concomitant]
     Indication: VITAMIN SUPPLEMENTATION
     Dosage: TOTAL DAILY DOSE: 100 ?G  UNIT DOSE: 100 ?G
  4. LEVOTHYROXINE SODIUM [Concomitant]
     Indication: THYROID DISORDER
     Dosage: TOTAL DAILY DOSE: 75 ?G  UNIT DOSE: 75 ?G
  5. SIMVASTATIN [Concomitant]
     Indication: BLOOD CHOLESTEROL INCREASED
     Dosage: TOTAL DAILY DOSE: 40 MG  UNIT DOSE: 40 MG
  6. ZETIA [Concomitant]
     Indication: HYPERTENSION
     Dosage: AS USED: 10 MG  UNIT DOSE: 10 MG
  7. ATENOLOL [Concomitant]
     Indication: HYPERTENSION
     Dosage: TOTAL DAILY DOSE: 50 MG  UNIT DOSE: 50 MG
  8. GLYBURIDE [Concomitant]
     Indication: DIABETES MELLITUS
     Dosage: TOTAL DAILY DOSE: 10 MG  UNIT DOSE: 5 MG
  9. METFORMIN HCL [Concomitant]
     Indication: HYPERGLYCAEMIA
     Dosage: TOTAL DAILY DOSE: 2000 MG  UNIT DOSE: 1000 MG

REACTIONS (8)
  - ARTHRALGIA [None]
  - BLOOD CHOLESTEROL INCREASED [None]
  - BLOOD GLUCOSE INCREASED [None]
  - BLOOD PRESSURE INCREASED [None]
  - BLOOD URINE PRESENT [None]
  - HAEMATOCHEZIA [None]
  - PAIN [None]
  - URINARY TRACT INFECTION [None]
